FAERS Safety Report 10249905 (Version 2)
Quarter: 2014Q2

REPORT INFORMATION
  Report Type: Spontaneous
  Country: US (occurrence: US)
  Receive Date: 20140620
  Receipt Date: 20140620
  Transmission Date: 20141212
  Serious: Yes (Hospitalization)
  Sender: FDA-Public Use
  Company Number: US-TAKEDA-2014TUS004742

PATIENT
  Age: 26 Year
  Sex: Female
  Weight: 82.99 kg

DRUGS (1)
  1. BRINTELLIX [Suspect]
     Indication: PRODUCT USED FOR UNKNOWN INDICATION
     Dosage: 10 MG, QD
     Route: 048
     Dates: start: 20140523, end: 20140526

REACTIONS (3)
  - Migraine [Recovered/Resolved]
  - Loss of consciousness [Unknown]
  - Nausea [Recovered/Resolved]
